FAERS Safety Report 7057346-0 (Version None)
Quarter: 2010Q4

REPORT INFORMATION
  Report Type: 
  Country: None (occurrence: None)
  Receive Date: 20101021
  Receipt Date: 20101021
  Transmission Date: 20110411
  Serious: No
  Sender: FDA-Public Use
  Company Number: None

PATIENT
  Age: 67 Year
  Sex: Male
  Weight: 70 kg

DRUGS (2)
  1. EPTIFIBATIDE [Suspect]
     Dosage: 5.3 ML IV
     Route: 042
     Dates: start: 20100707, end: 20100713
  2. ASPIRIN [Suspect]
     Dosage: EVERY DAY PO
     Route: 048

REACTIONS (8)
  - ANAEMIA [None]
  - ASTHENIA [None]
  - DIARRHOEA [None]
  - EPISTAXIS [None]
  - FAECES DISCOLOURED [None]
  - FATIGUE [None]
  - HAEMORRHAGE [None]
  - PALLOR [None]
